FAERS Safety Report 10243498 (Version 1)
Quarter: 2014Q2

REPORT INFORMATION
  Report Type: Spontaneous
  Country: US (occurrence: None)
  Receive Date: 20140616
  Receipt Date: 20140616
  Transmission Date: 20141212
  Serious: Yes (Other)
  Sender: FDA-Public Use
  Company Number: 2014AP003293

PATIENT
  Age: 34 Year
  Sex: Female

DRUGS (3)
  1. ZONISAMIDE [Suspect]
     Indication: MANIA
  2. ARIPIPRAZOLE (ARIPIPRAZOLE) [Concomitant]
  3. ESCITALOPRAM (ESCITALOPRAM) [Concomitant]

REACTIONS (2)
  - Off label use [None]
  - Psychotic disorder [None]
